FAERS Safety Report 8765646 (Version 2)
Quarter: 2013Q1

REPORT INFORMATION
  Report Type: Spontaneous
  Country: FR (occurrence: FR)
  Receive Date: 20120903
  Receipt Date: 20130124
  Transmission Date: 20140127
  Serious: Yes (Death, Life-Threatening, Hospitalization)
  Sender: FDA-Public Use
  Company Number: PHHY2012FR075732

PATIENT
  Age: 77 Year
  Sex: Female

DRUGS (5)
  1. TEGRETOL [Suspect]
     Indication: CONVULSION
     Dates: start: 20120507
  2. CORTANCYL [Suspect]
     Indication: PERITUMOURAL OEDEMA
     Dosage: 1 MG, DAILY
     Dates: start: 20120507
  3. CORTANCYL [Suspect]
     Dosage: DEGRESSIVE DOSE
     Dates: end: 20120625
  4. KEPPRA [Suspect]
     Indication: CONVULSION
     Dates: start: 20120507
  5. KEPPRA [Suspect]
     Dates: start: 201207

REACTIONS (9)
  - Respiratory tract infection [Fatal]
  - Acute respiratory distress syndrome [Unknown]
  - Dyspnoea [Unknown]
  - Interstitial lung disease [Recovering/Resolving]
  - Lung disorder [Unknown]
  - Alveolitis allergic [Unknown]
  - DNA antibody positive [Unknown]
  - Obliterative bronchiolitis [Not Recovered/Not Resolved]
  - Pneumonia [Unknown]
